FAERS Safety Report 21787357 (Version 2)
Quarter: 2023Q1

REPORT INFORMATION
  Report Type: Report from Study
  Country: PL (occurrence: PL)
  Receive Date: 20221228
  Receipt Date: 20230109
  Transmission Date: 20230418
  Serious: Yes (Other)
  Sender: FDA-Public Use
  Company Number: PL-002147023-NVSC2022PL297328

PATIENT
  Age: 43 Year
  Sex: Female

DRUGS (13)
  1. GOSERELIN [Suspect]
     Active Substance: GOSERELIN
     Indication: Breast cancer
     Dosage: 36 MG, EVERY 28 DAYS
     Route: 058
     Dates: start: 20200525
  2. RIBOCICLIB [Suspect]
     Active Substance: RIBOCICLIB
     Indication: Breast cancer
     Dosage: 400 MG, EVERY 18 DAYS
     Route: 048
     Dates: start: 20201001
  3. AUGMENTIN [Concomitant]
     Active Substance: AMOXICILLIN\CLAVULANATE POTASSIUM
     Indication: Product used for unknown indication
     Dosage: 1 G 2 X 1 TAB
     Route: 065
     Dates: start: 20220623, end: 20220707
  4. AUGMENTIN [Concomitant]
     Active Substance: AMOXICILLIN\CLAVULANATE POTASSIUM
     Dosage: 1 G 2 X 1 TAB
     Route: 065
     Dates: start: 20220725, end: 20220731
  5. BISEPTOL [Concomitant]
     Active Substance: SULFAMETHOXAZOLE\TRIMETHOPRIM
     Indication: Product used for unknown indication
     Dosage: 960 MG 2X1 TAB
     Route: 065
     Dates: start: 20220812, end: 20220817
  6. BISEPTOL [Concomitant]
     Active Substance: SULFAMETHOXAZOLE\TRIMETHOPRIM
     Dosage: 960 MG 2X1 TAB
     Route: 065
     Dates: start: 20220818, end: 20221127
  7. AMOXICILLIN [Concomitant]
     Active Substance: AMOXICILLIN
     Indication: Product used for unknown indication
     Dosage: UNK
     Route: 048
     Dates: start: 20221129, end: 20221130
  8. ENOXAPARIN SODIUM [Concomitant]
     Active Substance: ENOXAPARIN SODIUM
     Indication: Product used for unknown indication
     Dosage: 40 MG, QD
     Route: 058
     Dates: start: 20221127, end: 20221130
  9. FLUCONAZOLE [Concomitant]
     Active Substance: FLUCONAZOLE
     Indication: Product used for unknown indication
     Dosage: 50 MG (1X1 TAB)
     Route: 048
     Dates: start: 20221129, end: 20221130
  10. IBUPROFEN [Concomitant]
     Active Substance: IBUPROFEN
     Indication: Product used for unknown indication
     Dosage: 200 MG, QD (4 TOTAL)
     Route: 065
     Dates: start: 20221129, end: 20221130
  11. METAMIZOL [Concomitant]
     Active Substance: METAMIZOLE SODIUM
     Indication: Product used for unknown indication
     Dosage: 1 G, QD
     Route: 042
     Dates: start: 20221128, end: 20221129
  12. ACETAMINOPHEN [Concomitant]
     Active Substance: ACETAMINOPHEN
     Indication: Product used for unknown indication
     Dosage: 500 MG, QD
     Route: 048
     Dates: start: 20221128, end: 20221130
  13. SENZOP [Concomitant]
     Indication: Product used for unknown indication
     Dosage: 7.5 MG (20 PIKLON) (1X 1TAB)
     Route: 048
     Dates: start: 20221125, end: 20221128

REACTIONS (1)
  - Breast fibrosis [Recovered/Resolved]

NARRATIVE: CASE EVENT DATE: 20221125
